FAERS Safety Report 14341598 (Version 2)
Quarter: 2018Q2

REPORT INFORMATION
  Report Type: Spontaneous
  Country: FR (occurrence: FR)
  Receive Date: 20180102
  Receipt Date: 20180507
  Transmission Date: 20180711
  Serious: Yes (Other)
  Sender: FDA-Public Use
  Company Number: FR-MERCK KGAA-2038142

PATIENT
  Age: 63 Year
  Weight: 61 kg

DRUGS (1)
  1. NOVOTHYROX [Suspect]
     Active Substance: LEVOTHYROXINE SODIUM
     Indication: HYPOTHYROIDISM
     Route: 048
     Dates: start: 20170501, end: 20171016

REACTIONS (9)
  - Palpitations [Recovered/Resolved]
  - Back pain [Recovered/Resolved]
  - Headache [Recovered/Resolved]
  - Dyspnoea [Recovered/Resolved]
  - Arthralgia [Not Recovered/Not Resolved]
  - Hypertension [Recovered/Resolved]
  - Vertigo [Unknown]
  - Disturbance in attention [Unknown]
  - Blood thyroid stimulating hormone normal [Recovered/Resolved]

NARRATIVE: CASE EVENT DATE: 201707
